FAERS Safety Report 11028968 (Version 2)
Quarter: 2015Q2

REPORT INFORMATION
  Report Type: Spontaneous
  Country: US (occurrence: US)
  Receive Date: 20150414
  Receipt Date: 20150525
  Transmission Date: 20150821
  Serious: No
  Sender: FDA-Public Use
  Company Number: US-JNJFOC-20120401250

PATIENT
  Age: 45 Year
  Sex: Female
  Weight: 65.77 kg

DRUGS (2)
  1. ORTHO TRI CYCLEN [Suspect]
     Active Substance: ETHINYL ESTRADIOL\NORGESTIMATE
     Indication: CONTRACEPTION
     Dosage: FOR AT LEAST 12 YEARS
     Route: 048
  2. ORTHO TRI CYCLEN [Suspect]
     Active Substance: ETHINYL ESTRADIOL\NORGESTIMATE
     Indication: ACNE
     Dosage: FOR AT LEAST 12 YEARS
     Route: 048

REACTIONS (3)
  - Drug dose omission [Recovered/Resolved]
  - Fear [Not Recovered/Not Resolved]
  - Product blister packaging issue [Unknown]

NARRATIVE: CASE EVENT DATE: 201203
